FAERS Safety Report 25497014 (Version 1)
Quarter: 2025Q3

REPORT INFORMATION
  Report Type: Spontaneous
  Country: EU (occurrence: None)
  Receive Date: 20250701
  Receipt Date: 20250701
  Transmission Date: 20251021
  Serious: Yes (Hospitalization)
  Sender: CMP PHARMA
  Company Number: EU-CMPPHARMA-000520

PATIENT
  Age: 67 Year
  Sex: Male

DRUGS (1)
  1. ATORVALIQ [Suspect]
     Active Substance: ATORVASTATIN CALCIUM TRIHYDRATE
     Indication: Cerebrovascular disorder

REACTIONS (1)
  - Drug-induced liver injury [Recovering/Resolving]
